FAERS Safety Report 10313660 (Version 6)
Quarter: 2015Q1

REPORT INFORMATION
  Report Type: Report from Study
  Country: PH (occurrence: PH)
  Receive Date: 20140718
  Receipt Date: 20150326
  Transmission Date: 20150720
  Serious: Yes (Other)
  Sender: FDA-Public Use
  Company Number: PH-SA-2014SA091275

PATIENT
  Age: 47 Year
  Sex: Female
  Weight: 35 kg

DRUGS (4)
  1. TRAMADOL HYDROCHLORIDE/PARACETAMOL [Concomitant]
     Route: 048
     Dates: start: 20140408
  2. TRAMADOL HYDROCHLORIDE/PARACETAMOL [Concomitant]
     Route: 048
     Dates: start: 20140403, end: 20140407
  3. TERIFLUNOMIDE [Suspect]
     Active Substance: TERIFLUNOMIDE
     Indication: MULTIPLE SCLEROSIS RELAPSE
     Route: 048
     Dates: start: 20120229, end: 20140524
  4. METFORMIN [Concomitant]
     Active Substance: METFORMIN HYDROCHLORIDE
     Route: 065

REACTIONS (3)
  - Hepatic enzyme increased [Not Recovered/Not Resolved]
  - Hyperlipasaemia [Recovered/Resolved]
  - Hyperamylasaemia [Not Recovered/Not Resolved]

NARRATIVE: CASE EVENT DATE: 20140618
